FAERS Safety Report 4596926-9 (Version None)
Quarter: 2005Q1

REPORT INFORMATION
  Report Type: 
  Country: None (occurrence: None)
  Receive Date: 20050228
  Receipt Date: 20041120
  Transmission Date: 20050727
  Serious: Yes (Other)
  Sender: FDA-Public Use
  Company Number: 2004121855

PATIENT
  Sex: Female
  Weight: 60.782 kg

DRUGS (14)
  1. CELEBREX [Suspect]
     Indication: PAIN
     Dosage: 200 MG (200 MG, 1 IN 1 D), ORAL
     Route: 048
     Dates: start: 20030407
  2. BENADRYL [Suspect]
     Indication: INITIAL INSOMNIA
  3. TEMAZEPAM [Concomitant]
  4. CHONDROITIN/GLUCOSAMINE (CHONDROITIN, GLUCOSAMINE) [Concomitant]
  5. TOCOPHEROL (TOCOPHEROL) [Concomitant]
  6. ASCORBID ACID (ASCORBID ACID) [Concomitant]
  7. FISH OIL (FISH OIL) [Concomitant]
  8. MULTIVITAMINS (ASCORBIC ACID, ERGOCALCIFEROL, FOLIC ACID, NICOTINAMIDE [Concomitant]
  9. ALL OTHER THERAPEUTIC PRODUCTS (ALL OTHER THERAPEUTIC PRODUCTS) [Concomitant]
  10. ASPIRIN [Concomitant]
  11. CALCIUM CARBONATE (CALCIUM CARBONATE) [Concomitant]
  12. FLUTICASONE PROPIONATE [Concomitant]
  13. LORATADINE [Concomitant]
  14. ALENDRONATE SODIUM [Concomitant]

REACTIONS (8)
  - ARRHYTHMIA [None]
  - ATRIAL FIBRILLATION [None]
  - BLOOD CHOLESTEROL INCREASED [None]
  - DRUG INEFFECTIVE [None]
  - DRY EYE [None]
  - MIDDLE INSOMNIA [None]
  - PNEUMONIA [None]
  - POST PROCEDURAL PAIN [None]
